FAERS Safety Report 10050568 (Version 1)
Quarter: 2014Q2

REPORT INFORMATION
  Report Type: Spontaneous
  Country: US (occurrence: US)
  Receive Date: 20140401
  Receipt Date: 20140401
  Transmission Date: 20141212
  Serious: No
  Sender: FDA-Public Use
  Company Number: US-ASTRAZENECA-2013SE78253

PATIENT
  Age: 77 Year
  Sex: 0
  Weight: 122.5 kg

DRUGS (9)
  1. NEXIUM [Suspect]
     Indication: REFLUX LARYNGITIS
     Route: 048
     Dates: start: 20131009
  2. PRILOSEC OTC [Suspect]
     Indication: GASTROOESOPHAGEAL REFLUX DISEASE
     Route: 048
     Dates: start: 2011, end: 201310
  3. PRILOSEC OTC [Suspect]
     Indication: GASTROOESOPHAGEAL REFLUX DISEASE
     Dosage: OMPERAZOLE OTC
     Route: 048
     Dates: end: 201310
  4. LOSARTAN [Concomitant]
     Indication: HEART RATE IRREGULAR
     Route: 048
     Dates: start: 2013
  5. TRIAMTERENE HCTZ [Concomitant]
     Indication: HYPERTENSION
     Dosage: 1 TAB DAILY
     Route: 048
  6. ACEBUTOLOL [Concomitant]
     Indication: HYPERTENSION
     Route: 048
  7. KLOR-CON [Concomitant]
     Indication: SUPPLEMENTATION THERAPY
     Route: 048
  8. SIMVASTATIN [Concomitant]
     Indication: BLOOD CHOLESTEROL
     Route: 048
  9. ASPIRIN [Concomitant]
     Indication: CARDIAC DISORDER
     Route: 048

REACTIONS (5)
  - Gastrooesophageal reflux disease [Unknown]
  - Oesophagitis [Unknown]
  - Gastritis [Unknown]
  - Sinusitis [Unknown]
  - Off label use [Unknown]
